FAERS Safety Report 6669919-5 (Version None)
Quarter: 2010Q2

REPORT INFORMATION
  Report Type: 
  Country: None (occurrence: None)
  Receive Date: 20100406
  Receipt Date: 20100112
  Transmission Date: 20101027
  Serious: No
  Sender: FDA-Public Use
  Company Number: US-ALLERGAN-1000360US

PATIENT
  Sex: Female

DRUGS (8)
  1. LATISSE [Suspect]
     Indication: GROWTH OF EYELASHES
     Dosage: 1 GTT, UNK
     Route: 061
  2. SIMVASTATIN [Concomitant]
  3. LAMOTRIGINE [Concomitant]
  4. OMEPRAZOLE [Concomitant]
  5. SEROQUEL [Concomitant]
  6. AMBIEN [Concomitant]
  7. TRIAMTERENE AND HYDROCHLOROTHIAZIDE [Concomitant]
  8. CELEBREX [Concomitant]

REACTIONS (1)
  - EYE PRURITUS [None]
